FAERS Safety Report 23359150 (Version 1)
Quarter: 2024Q1

REPORT INFORMATION
  Report Type: Report from Study
  Country: US (occurrence: US)
  Receive Date: 20240102
  Receipt Date: 20240102
  Transmission Date: 20240410
  Serious: Yes (Other)
  Sender: FDA-Public Use
  Company Number: US-ABBVIE-5567422

PATIENT
  Age: 41 Year
  Sex: Female

DRUGS (1)
  1. BOTOX [Suspect]
     Active Substance: ONABOTULINUMTOXINA
     Indication: Migraine
     Dosage: TIME INTERVAL: AS NECESSARY: 200 UNITS/90 DAYS
     Route: 065

REACTIONS (2)
  - Brain operation [Recovered/Resolved]
  - Brain operation [Recovered/Resolved]

NARRATIVE: CASE EVENT DATE: 20210401
